FAERS Safety Report 23908224 (Version 1)
Quarter: 2024Q2

REPORT INFORMATION
  Report Type: Spontaneous
  Country: US (occurrence: US)
  Receive Date: 20240528
  Receipt Date: 20240528
  Transmission Date: 20240715
  Serious: Yes (Hospitalization)
  Sender: FDA-Public Use
  Company Number: US-MYLANLABS-2024M1045755

PATIENT
  Age: 62 Year
  Sex: Female

DRUGS (1)
  1. LITHIUM [Suspect]
     Active Substance: LITHIUM
     Indication: Bipolar disorder
     Dosage: UNK, INTERMITTENT LITHIUM
     Route: 065
     Dates: start: 2010

REACTIONS (3)
  - Catatonia [Recovering/Resolving]
  - Hypercalcaemia [Recovering/Resolving]
  - Hyperparathyroidism [Recovering/Resolving]
